FAERS Safety Report 20424694 (Version 1)
Quarter: 2022Q1

REPORT INFORMATION
  Report Type: Spontaneous
  Country: US (occurrence: US)
  Receive Date: 20220203
  Receipt Date: 20220203
  Transmission Date: 20220423
  Serious: No
  Sender: FDA-Public Use
  Company Number: US-EXELIXIS-CABO-21037825

PATIENT
  Sex: Male

DRUGS (2)
  1. CABOMETYX [Suspect]
     Active Substance: CABOZANTINIB S-MALATE
     Indication: Renal cell carcinoma
     Dosage: 60 MG, QD
     Route: 048
  2. CABOMETYX [Suspect]
     Active Substance: CABOZANTINIB S-MALATE
     Dosage: 60MG AND 40MG ON ALTERNATING DAYS.
     Route: 048

REACTIONS (12)
  - Medial tibial stress syndrome [Not Recovered/Not Resolved]
  - Paraesthesia [Not Recovered/Not Resolved]
  - Hypoaesthesia [Not Recovered/Not Resolved]
  - Hip deformity [Not Recovered/Not Resolved]
  - Peroneal nerve palsy [Unknown]
  - Muscular weakness [Not Recovered/Not Resolved]
  - Skin disorder [Unknown]
  - Tenderness [Not Recovered/Not Resolved]
  - Blister [Recovering/Resolving]
  - Spinal stenosis [Not Recovered/Not Resolved]
  - Skin exfoliation [Recovering/Resolving]
  - Inappropriate schedule of product administration [Unknown]
